FAERS Safety Report 6223124-5 (Version None)
Quarter: 2009Q2

REPORT INFORMATION
  Report Type: 
  Country: None (occurrence: None)
  Receive Date: 20090611
  Receipt Date: 20090420
  Transmission Date: 20091009
  Serious: Yes (Disabling, Other)
  Sender: FDA-Public Use
  Company Number: US-BAYER-200912944NA

PATIENT
  Age: 25 Year
  Sex: Male

DRUGS (37)
  1. MAGNEVIST [Suspect]
     Indication: NUCLEAR MAGNETIC RESONANCE IMAGING ABDOMINAL
     Dates: start: 20030303, end: 20030303
  2. MAGNEVIST [Suspect]
     Dates: start: 20030613, end: 20030613
  3. MAGNEVIST [Suspect]
     Dates: start: 20030617, end: 20030617
  4. MAGNEVIST [Suspect]
     Dates: start: 20071107, end: 20071107
  5. MAGNEVIST [Suspect]
     Dates: start: 20061003, end: 20061003
  6. CONTRAST MEDIA [Suspect]
     Indication: NUCLEAR MAGNETIC RESONANCE IMAGING BRAIN
     Dates: start: 19990315, end: 19990315
  7. CELLCEPT [Concomitant]
  8. PROGRAF [Concomitant]
  9. KEPPRA [Concomitant]
  10. VICODIN [Concomitant]
     Indication: PAIN
  11. TYLENOL W/ CODEINE [Concomitant]
     Indication: PAIN
  12. EPOGEN [Concomitant]
  13. IRON SUPPLEMENTS [Concomitant]
  14. NEPHROCAPS [Concomitant]
  15. BLOOD PRESSURE MEDICATIONS NOS [Concomitant]
  16. CYCOTAN [Concomitant]
  17. COUMADIN [Concomitant]
  18. PREDNISONE [Concomitant]
  19. PEPCID [Concomitant]
  20. ASPIRIN [Concomitant]
  21. MEGESTROL ACETATE [Concomitant]
  22. PROCRIT [Concomitant]
  23. LASIX [Concomitant]
  24. TACROLIMUS [Concomitant]
  25. CYTOXAN [Concomitant]
  26. ULTRAVIST 150 [Concomitant]
     Indication: CENTRAL VENOUS CATHETERISATION
     Dates: start: 20040709, end: 20040709
  27. DILANTIN [Concomitant]
     Indication: CONVULSION
  28. CISAPRIDE [Concomitant]
  29. CATAPRES [Concomitant]
  30. ATIVAN [Concomitant]
  31. PHOSLO [Concomitant]
  32. NEUPOGEN [Concomitant]
     Route: 058
     Dates: start: 19981024
  33. NEPHROVITE [Concomitant]
  34. NORVASC [Concomitant]
  35. PENTAMIDINE ISETHIONATE [Concomitant]
  36. VALTREX [Concomitant]
  37. BACTROBAN [Concomitant]

REACTIONS (38)
  - ANHEDONIA [None]
  - ANXIETY [None]
  - ARTHRALGIA [None]
  - BALANCE DISORDER [None]
  - DYSSTASIA [None]
  - EMOTIONAL DISTRESS [None]
  - ERYTHEMA [None]
  - FATIGUE [None]
  - FIBROSIS [None]
  - FOOT DEFORMITY [None]
  - GAIT DISTURBANCE [None]
  - GENERAL PHYSICAL HEALTH DETERIORATION [None]
  - HYPOAESTHESIA [None]
  - JOINT CONTRACTURE [None]
  - JOINT RANGE OF MOTION DECREASED [None]
  - MOBILITY DECREASED [None]
  - MUSCLE ATROPHY [None]
  - MUSCLE CONTRACTURE [None]
  - MUSCULAR WEAKNESS [None]
  - MUSCULOSKELETAL DISCOMFORT [None]
  - MUSCULOSKELETAL STIFFNESS [None]
  - MYOPATHY [None]
  - NEPHROGENIC SYSTEMIC FIBROSIS [None]
  - NEUROPATHY PERIPHERAL [None]
  - OEDEMA PERIPHERAL [None]
  - PAIN [None]
  - PERONEAL NERVE PALSY [None]
  - POLYNEUROPATHY [None]
  - SCAR [None]
  - SKIN ATROPHY [None]
  - SKIN DEPIGMENTATION [None]
  - SKIN EXFOLIATION [None]
  - SKIN FIBROSIS [None]
  - SKIN HYPERTROPHY [None]
  - SKIN INDURATION [None]
  - SKIN TIGHTNESS [None]
  - SKIN ULCER [None]
  - WHEELCHAIR USER [None]
